FAERS Safety Report 25096060 (Version 1)
Quarter: 2025Q1

REPORT INFORMATION
  Report Type: Spontaneous
  Country: US (occurrence: US)
  Receive Date: 20250319
  Receipt Date: 20250319
  Transmission Date: 20250409
  Serious: No
  Sender: GLAUKOS
  Company Number: US-GLK-000613

PATIENT

DRUGS (1)
  1. IDOSE TR [Suspect]
     Active Substance: TRAVOPROST
     Indication: Product used for unknown indication
     Route: 047

REACTIONS (1)
  - Intraocular pressure increased [Unknown]
